FAERS Safety Report 9645299 (Version 2)
Quarter: 2013Q4

REPORT INFORMATION
  Report Type: Spontaneous
  Country: US (occurrence: US)
  Receive Date: 20131025
  Receipt Date: 20131231
  Transmission Date: 20140711
  Serious: Yes (Other)
  Sender: FDA-Public Use
  Company Number: US-BAYER-2013-127598

PATIENT
  Age: 24 Year
  Sex: Female
  Weight: 68.03 kg

DRUGS (2)
  1. MIRENA [Suspect]
     Indication: CONTRACEPTION
     Dosage: 20 ?G/D, CONT
     Route: 015
     Dates: start: 20130727, end: 20131014
  2. NORFLEX [Concomitant]
     Dosage: 100 MG, BID
     Route: 048

REACTIONS (15)
  - Bacterial vaginosis [None]
  - Ovarian cyst [None]
  - Ovarian cyst ruptured [None]
  - Dyspareunia [None]
  - Coital bleeding [None]
  - Pelvic pain [None]
  - Genital haemorrhage [None]
  - Uterine spasm [None]
  - Dyspnoea [None]
  - Mobility decreased [None]
  - Pelvic fluid collection [None]
  - Sexual relationship change [None]
  - Abdominal pain lower [None]
  - Abdominal pain [None]
  - Pain [None]
